FAERS Safety Report 10626302 (Version 2)
Quarter: 2015Q1

REPORT INFORMATION
  Report Type: Spontaneous
  Country: US (occurrence: US)
  Receive Date: 20141204
  Receipt Date: 20150122
  Transmission Date: 20150720
  Serious: Yes (Death, Hospitalization, Other)
  Sender: FDA-Public Use
  Company Number: US-JNJFOC-20141202622

PATIENT
  Age: 65 Year
  Sex: Male

DRUGS (18)
  1. IMBRUVICA [Suspect]
     Active Substance: IBRUTINIB
     Indication: CHRONIC LYMPHOCYTIC LEUKAEMIA
     Route: 048
     Dates: start: 20140210, end: 201411
  2. FLOMAX [Concomitant]
     Active Substance: TAMSULOSIN HYDROCHLORIDE
     Route: 048
  3. IRON [Concomitant]
     Active Substance: IRON
     Route: 048
     Dates: end: 20141111
  4. CHROMIUM [Concomitant]
     Active Substance: CHROMIC CHLORIDE\CHROMIUM
     Route: 048
     Dates: end: 20141111
  5. ALLOPURINOL. [Concomitant]
     Active Substance: ALLOPURINOL
     Dates: end: 20141111
  6. CLARITIN [Concomitant]
     Active Substance: LORATADINE
  7. CRESTOR [Concomitant]
     Active Substance: ROSUVASTATIN CALCIUM
     Dates: end: 20141111
  8. NAPROXEN. [Concomitant]
     Active Substance: NAPROXEN
     Route: 048
     Dates: end: 20141111
  9. ASTELIN [Concomitant]
     Active Substance: AZELASTINE HYDROCHLORIDE
     Route: 045
  10. PEPCID [Concomitant]
     Active Substance: FAMOTIDINE
     Route: 048
  11. VITAMIN C [Concomitant]
     Active Substance: ASCORBIC ACID
     Dates: end: 20141111
  12. MAGNESIUM [Concomitant]
     Active Substance: MAGNESIUM
     Route: 048
     Dates: end: 20141111
  13. IMBRUVICA [Suspect]
     Active Substance: IBRUTINIB
     Indication: CHRONIC LYMPHOCYTIC LEUKAEMIA
     Dosage: TWO THIRDS DOSE
     Route: 048
     Dates: start: 20141107, end: 20141111
  14. SAW PALMETTO [Concomitant]
     Active Substance: SAW PALMETTO
     Route: 048
     Dates: end: 20141111
  15. SINGULAIR [Concomitant]
     Active Substance: MONTELUKAST SODIUM
     Route: 048
  16. VITAMIN B [Concomitant]
     Active Substance: VITAMIN B
     Dates: end: 20141111
  17. ATOVAQUONE. [Concomitant]
     Active Substance: ATOVAQUONE
     Indication: PNEUMOCYSTIS JIROVECII PNEUMONIA
     Dates: end: 20141111
  18. LACTOBACILLUS [Concomitant]
     Active Substance: LACTOBACILLUS ACIDOPHILUS
     Dates: end: 20141111

REACTIONS (13)
  - Cough [Unknown]
  - Fatigue [Recovering/Resolving]
  - Pyrexia [Recovering/Resolving]
  - Tumour lysis syndrome [Unknown]
  - Night sweats [Recovering/Resolving]
  - Acute kidney injury [Not Recovered/Not Resolved]
  - Pneumonia [Unknown]
  - Disease progression [Fatal]
  - Uraemic encephalopathy [Unknown]
  - Metabolic acidosis [Unknown]
  - Haemolysis [Unknown]
  - Pulmonary embolism [Unknown]
  - Febrile neutropenia [Unknown]

NARRATIVE: CASE EVENT DATE: 2014
